FAERS Safety Report 25529959 (Version 1)
Quarter: 2025Q3

REPORT INFORMATION
  Report Type: Spontaneous
  Country: US (occurrence: US)
  Receive Date: 20250708
  Receipt Date: 20250708
  Transmission Date: 20251020
  Serious: Yes (Other)
  Sender: DR REDDYS
  Company Number: None

PATIENT
  Sex: Male

DRUGS (6)
  1. LAMOTRIGINE [Suspect]
     Active Substance: LAMOTRIGINE
     Indication: Epilepsy
  2. TOPIRAMATE [Suspect]
     Active Substance: TOPIRAMATE
     Indication: Epilepsy
  3. VALPROIC ACID [Suspect]
     Active Substance: VALPROIC ACID
     Indication: Epilepsy
  4. CARBAMAZEPINE [Suspect]
     Active Substance: CARBAMAZEPINE
     Indication: Epilepsy
  5. FELBAMATE [Suspect]
     Active Substance: FELBAMATE
     Indication: Epilepsy
  6. CLOBAZAM [Concomitant]
     Active Substance: CLOBAZAM
     Indication: Epilepsy

REACTIONS (2)
  - Drug ineffective [Unknown]
  - Dermatitis allergic [Recovered/Resolved]
